FAERS Safety Report 8141581-4 (Version None)
Quarter: 2012Q1

REPORT INFORMATION
  Report Type: 
  Country: None (occurrence: None)
  Receive Date: 20120216
  Receipt Date: 20120207
  Transmission Date: 20120608
  Serious: Yes (Hospitalization)
  Sender: FDA-Public Use
  Company Number: CA-JNJFOC-20120203944

PATIENT
  Sex: Female
  Weight: 111 kg

DRUGS (8)
  1. HYDROCHLOROTHIAZIDE [Concomitant]
     Route: 065
  2. REMICADE [Suspect]
     Indication: COLITIS ULCERATIVE
     Route: 042
     Dates: start: 20071128
  3. FOLIC ACID [Concomitant]
     Route: 065
  4. METHOTREXATE [Concomitant]
     Route: 065
  5. SYNTHROID [Concomitant]
     Route: 065
  6. NORVASC [Concomitant]
     Route: 065
  7. MICARDIS [Concomitant]
     Route: 065
  8. REMICADE [Suspect]
     Indication: RHEUMATOID ARTHRITIS
     Route: 042
     Dates: start: 20071128

REACTIONS (2)
  - HIP SURGERY [None]
  - INFECTION [None]
